FAERS Safety Report 6412264-3 (Version None)
Quarter: 2009Q4

REPORT INFORMATION
  Report Type: 
  Country: None (occurrence: None)
  Receive Date: 20091023
  Receipt Date: 20091013
  Transmission Date: 20100525
  Serious: Yes (Other)
  Sender: FDA-Public Use
  Company Number: ES-PFIZER INC-2009282276

PATIENT
  Age: 50 Year

DRUGS (9)
  1. LYRICA [Suspect]
     Indication: POST HERPETIC NEURALGIA
     Dosage: 75 MG, 2X/DAY
     Dates: start: 20090827, end: 20090909
  2. EUTIROX [Concomitant]
     Indication: HYPOTHYROIDISM
  3. EZETROL [Concomitant]
  4. ZOLPIDEM [Concomitant]
  5. METAMIZOLE [Concomitant]
  6. FLURAZEPAM [Concomitant]
     Dosage: UNK
  7. TRAMADOL HYDROCHLORIDE [Concomitant]
     Dosage: 100 MG, UNK
     Dates: start: 20090813
  8. TRAMADOL HYDROCHLORIDE [Concomitant]
     Dosage: 37.5 MG, UNK
  9. PARACETAMOL [Concomitant]

REACTIONS (1)
  - BLOOD THYROID STIMULATING HORMONE INCREASED [None]
